FAERS Safety Report 5030824-1 (Version None)
Quarter: 2006Q2

REPORT INFORMATION
  Report Type: 
  Country: None (occurrence: None)
  Receive Date: 20060619
  Receipt Date: 20060608
  Transmission Date: 20061013
  Serious: Yes (Hospitalization)
  Sender: FDA-Public Use
  Company Number: DE-2006-010593

PATIENT
  Age: 39 Year
  Sex: Female
  Weight: 76 kg

DRUGS (1)
  1. BETASERON [Suspect]
     Indication: MULTIPLE SCLEROSIS
     Dosage: 8 MIU, EVERY 2D, SUBCUTANEOUS
     Route: 058
     Dates: start: 20050826, end: 20060503

REACTIONS (6)
  - ARTHRITIS [None]
  - C-REACTIVE PROTEIN INCREASED [None]
  - ERYTHEMA [None]
  - HYPERTHERMIA [None]
  - LIVER FUNCTION TEST ABNORMAL [None]
  - OEDEMA PERIPHERAL [None]
